FAERS Safety Report 18903436 (Version 1)
Quarter: 2021Q1

REPORT INFORMATION
  Report Type: Report from Study
  Country: TH (occurrence: TH)
  Receive Date: 20210216
  Receipt Date: 20210216
  Transmission Date: 20210420
  Serious: Yes (Other)
  Sender: FDA-Public Use
  Company Number: TH-SUN PHARMACEUTICAL INDUSTRIES LTD-2021R1-279613

PATIENT
  Age: 65 Year
  Sex: Female

DRUGS (10)
  1. LINEZOLIDE [Suspect]
     Active Substance: LINEZOLID
     Indication: SCLERITIS
     Route: 065
  2. RIFAMPIN. [Suspect]
     Active Substance: RIFAMPIN
     Indication: SCLERITIS
     Route: 065
  3. IMIPENEM [Suspect]
     Active Substance: IMIPENEM
     Indication: KERATITIS
  4. IMIPENEM [Suspect]
     Active Substance: IMIPENEM
     Indication: SCLERITIS
     Route: 065
  5. LEVOFLOXACIN. [Suspect]
     Active Substance: LEVOFLOXACIN
     Indication: SCLERITIS
     Route: 065
  6. RIFAMPIN. [Suspect]
     Active Substance: RIFAMPIN
     Indication: KERATITIS
  7. CLARITHROMYCIN. [Suspect]
     Active Substance: CLARITHROMYCIN
     Indication: KERATITIS
  8. CLARITHROMYCIN. [Suspect]
     Active Substance: CLARITHROMYCIN
     Indication: SCLERITIS
     Route: 065
  9. LEVOFLOXACIN. [Suspect]
     Active Substance: LEVOFLOXACIN
     Indication: KERATITIS
  10. LINEZOLIDE [Suspect]
     Active Substance: LINEZOLID
     Indication: KERATITIS

REACTIONS (1)
  - Treatment failure [Unknown]
